FAERS Safety Report 10168786 (Version 1)
Quarter: 2014Q2

REPORT INFORMATION
  Report Type: Spontaneous
  Country: AU (occurrence: None)
  Receive Date: 20140509
  Receipt Date: 20140509
  Transmission Date: 20141212
  Serious: Yes (Other)
  Sender: FDA-Public Use
  Company Number: 2014AP002839

PATIENT
  Age: 79 Year
  Sex: Male

DRUGS (1)
  1. ZOLEDRONIC ACID [Suspect]
     Indication: OSTEITIS DEFORMANS
     Route: 042

REACTIONS (5)
  - Myocarditis [None]
  - C-reactive protein increased [None]
  - Red blood cell sedimentation rate decreased [None]
  - Troponin increased [None]
  - Blood creatine phosphokinase increased [None]
